FAERS Safety Report 21416521 (Version 1)
Quarter: 2022Q4

REPORT INFORMATION
  Report Type: Spontaneous
  Country: US (occurrence: US)
  Receive Date: 20221006
  Receipt Date: 20221006
  Transmission Date: 20230112
  Serious: No
  Sender: FDA-Public Use
  Company Number: US-ALLERGAN-2218098US

PATIENT
  Age: 63 Year
  Sex: Female

DRUGS (7)
  1. VRAYLAR [Suspect]
     Active Substance: CARIPRAZINE
     Indication: Bipolar disorder
     Dosage: UNK MG
     Route: 048
     Dates: end: 202201
  2. VRAYLAR [Suspect]
     Active Substance: CARIPRAZINE
     Indication: Schizophrenia
  3. LAMOTRIGINE [Concomitant]
     Active Substance: LAMOTRIGINE
     Indication: Anxiety
     Dosage: 100 MG, QD
     Route: 048
  4. LAMOTRIGINE [Concomitant]
     Active Substance: LAMOTRIGINE
     Indication: Bipolar disorder
  5. LAMOTRIGINE [Concomitant]
     Active Substance: LAMOTRIGINE
     Indication: Schizophrenia
  6. HYDROXYZINE HYDROCHLORIDE [Concomitant]
     Active Substance: HYDROXYZINE HYDROCHLORIDE
     Indication: Bipolar disorder
     Dosage: 25 MG TWO PILLS AT NIGHT
     Route: 048
     Dates: start: 202112
  7. HYDROXYZINE HYDROCHLORIDE [Concomitant]
     Active Substance: HYDROXYZINE HYDROCHLORIDE
     Indication: Schizophrenia

REACTIONS (1)
  - Tardive dyskinesia [Not Recovered/Not Resolved]

NARRATIVE: CASE EVENT DATE: 20210901
